FAERS Safety Report 5147645-1 (Version None)
Quarter: 2006Q4

REPORT INFORMATION
  Report Type: 
  Country: None (occurrence: None)
  Receive Date: 20060915
  Receipt Date: 20060117
  Transmission Date: 20070319
  Serious: Yes (Other)
  Sender: FDA-Public Use
  Company Number: S06-USA-00213-01

PATIENT
  Age: 35 Year
  Sex: Male

DRUGS (1)
  1. CELEXA [Suspect]
     Indication: ANXIETY
     Dosage: 20 MG QD PO
     Route: 048
     Dates: start: 20010101, end: 20030101

REACTIONS (4)
  - ANORGASMIA [None]
  - ERECTILE DYSFUNCTION [None]
  - HYPOAESTHESIA [None]
  - LOSS OF LIBIDO [None]
